FAERS Safety Report 13444035 (Version 1)
Quarter: 2017Q2

REPORT INFORMATION
  Report Type: Spontaneous
  Country: GB (occurrence: GB)
  Receive Date: 20170414
  Receipt Date: 20170414
  Transmission Date: 20170830
  Serious: Yes (Other)
  Sender: FDA-Public Use
  Company Number: GB-TEVA-757765ACC

PATIENT
  Age: 75 Year
  Sex: Female

DRUGS (3)
  1. AMIKACIN [Suspect]
     Active Substance: AMIKACIN
     Dosage: 1350 MILLIGRAM DAILY;
  2. FUROSEMIDE. [Suspect]
     Active Substance: FUROSEMIDE
  3. GENTAMICIN. [Suspect]
     Active Substance: GENTAMICIN
     Dosage: 5 MG/KG DAILY;
     Route: 042
     Dates: start: 20170108

REACTIONS (3)
  - Neutropenic sepsis [Unknown]
  - Deafness [Unknown]
  - Incorrect dose administered [Unknown]
